FAERS Safety Report 12614630 (Version 1)
Quarter: 2016Q3

REPORT INFORMATION
  Report Type: Spontaneous
  Country: US (occurrence: None)
  Receive Date: 20160801
  Receipt Date: 20160801
  Transmission Date: 20161109
  Serious: Yes (Life-Threatening, Hospitalization)
  Sender: FDA-Public Use
  Company Number: None

PATIENT
  Age: 63 Year
  Sex: Male
  Weight: 100 kg

DRUGS (1)
  1. IOPROMIDE [Suspect]
     Active Substance: IOPROMIDE
     Indication: ANGIOGRAM
     Route: 042
     Dates: start: 20160718, end: 20160718

REACTIONS (5)
  - Anaphylactic reaction [None]
  - Contrast media allergy [None]
  - Dyspnoea [None]
  - Procedural complication [None]
  - Hypotension [None]

NARRATIVE: CASE EVENT DATE: 20160718
